FAERS Safety Report 6227929-6 (Version None)
Quarter: 2009Q2

REPORT INFORMATION
  Report Type: 
  Country: None (occurrence: None)
  Receive Date: 20090612
  Receipt Date: 20090602
  Transmission Date: 20091009
  Serious: Yes (Hospitalization, Disabling, Other)
  Sender: FDA-Public Use
  Company Number: US-ABBOTT-09P-163-0562569-01

PATIENT
  Sex: Female
  Weight: 57.204 kg

DRUGS (49)
  1. HUMIRA [Suspect]
     Indication: CROHN'S DISEASE
     Route: 058
     Dates: start: 20080818, end: 20090109
  2. ENTOCORT EC [Concomitant]
     Indication: CROHN'S DISEASE
     Dates: start: 20080820, end: 20090311
  3. ENTOCORT EC [Concomitant]
     Indication: ABDOMINAL PAIN
     Dates: start: 20080704, end: 20080820
  4. MS CONTIN [Concomitant]
     Indication: ABDOMINAL PAIN
     Dates: start: 20080902, end: 20090226
  5. DILAUDID [Concomitant]
     Indication: ABDOMINAL PAIN
     Dates: start: 20080610, end: 20090115
  6. DILAUDID [Concomitant]
     Dosage: 8-12 MG
     Dates: start: 20060804, end: 20080610
  7. BACLOFEN [Concomitant]
     Indication: MUSCLE RELAXANT THERAPY
     Dates: start: 20070430, end: 20090226
  8. BACLOFEN [Concomitant]
     Indication: ARTHRITIS
  9. BACLOFEN [Concomitant]
     Indication: ABDOMINAL PAIN
  10. CYMBALTA [Concomitant]
     Indication: ANXIETY
     Dates: start: 20070329, end: 20070927
  11. CYMBALTA [Concomitant]
     Indication: DEPRESSION
     Dates: start: 20070927, end: 20080824
  12. CYMBALTA [Concomitant]
     Indication: PAIN
     Dosage: 30 MG Q AM, 60 MG QPM
     Dates: start: 20080924, end: 20090226
  13. ZANAFLEX [Concomitant]
     Indication: MUSCLE RELAXANT THERAPY
     Dates: start: 20070802, end: 20080925
  14. ZANAFLEX [Concomitant]
     Indication: SLEEP DISORDER THERAPY
     Dates: start: 20081014, end: 20081219
  15. ZANAFLEX [Concomitant]
     Indication: PAIN
     Dates: start: 20081222, end: 20090206
  16. ZANAFLEX [Concomitant]
     Dates: start: 20090206
  17. ZANAFLEX [Concomitant]
     Dates: start: 20080925, end: 20081014
  18. ATIVAN [Concomitant]
     Indication: ANXIETY
     Dates: start: 20080610, end: 20080704
  19. ATIVAN [Concomitant]
     Indication: PAIN
     Dates: start: 20080704, end: 20080827
  20. ATIVAN [Concomitant]
     Indication: NAUSEA
     Dates: start: 20080827, end: 20090226
  21. ATIVAN [Concomitant]
     Dates: start: 20090226
  22. PROTONIX [Concomitant]
     Indication: HYPERCHLORHYDRIA
     Dates: start: 20080328
  23. PHENERGAN [Concomitant]
     Indication: NAUSEA
     Dates: start: 20071018, end: 20080814
  24. PHENERGAN [Concomitant]
     Indication: ANTIEMETIC SUPPORTIVE CARE
     Dates: start: 20080814, end: 20080820
  25. PHENERGAN [Concomitant]
     Dates: start: 20080820, end: 20090105
  26. PHENERGAN [Concomitant]
     Dates: start: 20090105, end: 20090115
  27. ZOFRAN ODT [Concomitant]
     Indication: NAUSEA
     Dates: start: 20070126, end: 20090309
  28. CELEBREX [Concomitant]
     Indication: PAIN
     Dates: start: 20080807, end: 20090310
  29. CELEBREX [Concomitant]
     Indication: ARTHRITIS
  30. REGLAN [Concomitant]
     Indication: GASTROOESOPHAGEAL REFLUX DISEASE
     Dates: start: 20080610, end: 20080731
  31. REGLAN [Concomitant]
     Indication: NAUSEA
     Dates: start: 20080731, end: 20080902
  32. REGLAN [Concomitant]
     Indication: VOMITING
     Dates: start: 20080902, end: 20081031
  33. REGLAN [Concomitant]
     Dates: start: 20081031, end: 20090115
  34. REGLAN [Concomitant]
     Dates: start: 20080814, end: 20081031
  35. LIDOCAINE [Concomitant]
     Indication: ANALGESIA
     Route: 042
     Dates: start: 20080911
  36. PERCOCET [Concomitant]
     Indication: ABDOMINAL PAIN
     Dates: start: 20090115
  37. PERCOCET [Concomitant]
     Dates: start: 20081031, end: 20090311
  38. CYANOCOBALAMIN [Concomitant]
     Indication: ANAEMIA
     Route: 030
     Dates: start: 20080704
  39. CYANOCOBALAMIN [Concomitant]
     Indication: VITAMIN B12 DEFICIENCY
  40. BENADRYL [Concomitant]
     Indication: PRURITUS
     Dosage: 25-50 MG
     Dates: start: 20080814, end: 20090213
  41. LO/OVRAL [Concomitant]
     Indication: CONTRACEPTION
     Dates: start: 20051007, end: 20090311
  42. SENNA [Concomitant]
     Indication: CONSTIPATION
     Dates: start: 20080704
  43. FERROUS GLUCONATE [Concomitant]
     Indication: ANAEMIA
     Route: 048
     Dates: start: 20080814
  44. MIRALAX [Concomitant]
     Indication: CONSTIPATION
     Dates: start: 20081222, end: 20090122
  45. PRILOSEC [Concomitant]
     Indication: GASTROOESOPHAGEAL REFLUX DISEASE
     Dates: start: 20080714, end: 20081222
  46. PRILOSEC [Concomitant]
     Indication: HYPERCHLORHYDRIA
  47. METHADONE HCL [Concomitant]
     Indication: DRUG DETOXIFICATION
     Dates: start: 20080603, end: 20080828
  48. COMBIVENT [Concomitant]
     Indication: CHRONIC OBSTRUCTIVE PULMONARY DISEASE
     Dates: start: 20080217
  49. OXYCET [Concomitant]
     Indication: ABDOMINAL PAIN
     Dates: start: 20081031, end: 20081125

REACTIONS (7)
  - ACUTE RESPIRATORY DISTRESS SYNDROME [None]
  - COELIAC ARTERY COMPRESSION SYNDROME [None]
  - CONSTIPATION [None]
  - DRUG DEPENDENCE [None]
  - HEPATIC NECROSIS [None]
  - PNEUMONIA [None]
  - WITHDRAWAL SYNDROME [None]
